FAERS Safety Report 9827713 (Version 1)
Quarter: 2013Q4

REPORT INFORMATION
  Report Type: Spontaneous
  Country: US (occurrence: None)
  Receive Date: 20131120
  Receipt Date: 20131120
  Transmission Date: 20140711
  Serious: No
  Sender: FDA-Public Use
  Company Number: 1000047426

PATIENT
  Age: 55 Year
  Sex: Female

DRUGS (11)
  1. VIIBRYD [Suspect]
     Indication: MAJOR DEPRESSION
     Dosage: 1 IN 1 D
     Dates: start: 20121130, end: 201303
  2. VIIBRYD [Suspect]
     Indication: ANXIETY DISORDER
     Dosage: 1 IN 1 D
     Dates: start: 20121130, end: 201303
  3. VIIBRYD [Suspect]
     Indication: MAJOR DEPRESSION
     Dosage: 1 IN 1 D
     Dates: start: 201306, end: 201307
  4. VIIBRYD [Suspect]
     Indication: ANXIETY DISORDER
     Dosage: 1 IN 1 D
     Dates: start: 201306, end: 201307
  5. PRESTIQ (DESVENLAFAXINE SUCCINATE) (DESVENLAFAXINE SUCCINATE) [Concomitant]
  6. RISPERIDONE (RISPERIDONE) (RISPERIDONE) [Concomitant]
  7. ALLEGRA (FEXOFENADINE HYDROCHLORIDE) (FEXOFENADINE HYDROCHLORIDE) [Concomitant]
  8. ALPRAZOLAM (ALPRAZOLAM) (ALPRAZOLAM) [Concomitant]
  9. ZOLPIDEM (ZOLPIDEM) (ZOLPIDEM) [Concomitant]
  10. OMEPRAZOLE (OMEPRAZOLE) (OMEPRAZOLE) [Concomitant]
  11. PROMETRIUM (PROGESTERONE) (PROGESTERONE) [Concomitant]

REACTIONS (3)
  - Nausea [None]
  - Abdominal pain upper [None]
  - Decreased appetite [None]
